FAERS Safety Report 8194338-2 (Version None)
Quarter: 2012Q1

REPORT INFORMATION
  Report Type: 
  Country: None (occurrence: None)
  Receive Date: 20120308
  Receipt Date: 20120306
  Transmission Date: 20120608
  Serious: No
  Sender: FDA-Public Use
  Company Number: US-PFIZER INC-2012059921

PATIENT
  Sex: Female
  Weight: 75.283 kg

DRUGS (4)
  1. CHANTIX [Suspect]
     Indication: SMOKING CESSATION THERAPY
     Dosage: 0.5 MG, 1X/DAY
     Dates: start: 20110901, end: 20110101
  2. LAMICTAL [Concomitant]
     Indication: INJURY
     Dosage: UNK
  3. CHANTIX [Suspect]
     Dosage: 1 MG, 2X/DAY
     Dates: start: 20110101
  4. TOPAMAX [Concomitant]
     Indication: INJURY
     Dosage: UNK

REACTIONS (1)
  - AFFECTIVE DISORDER [None]
